FAERS Safety Report 19587524 (Version 1)
Quarter: 2021Q3

REPORT INFORMATION
  Report Type: Spontaneous
  Country: US (occurrence: US)
  Receive Date: 20210721
  Receipt Date: 20210721
  Transmission Date: 20211014
  Serious: Yes (Other)
  Sender: FDA-Public Use
  Company Number: NVSC2021US159116

PATIENT
  Age: 55 Year
  Sex: Male

DRUGS (2)
  1. ALPELISIB [Suspect]
     Active Substance: ALPELISIB
     Indication: METASTATIC NEOPLASM
  2. ALPELISIB [Suspect]
     Active Substance: ALPELISIB
     Indication: EXTRAMAMMARY PAGET^S DISEASE
     Dosage: UNK
     Route: 048

REACTIONS (6)
  - Rash [Unknown]
  - Product use in unapproved indication [Unknown]
  - Nausea [Unknown]
  - Malignant neoplasm progression [Unknown]
  - Extramammary Paget^s disease [Unknown]
  - Hyperglycaemia [Unknown]
